FAERS Safety Report 23117452 (Version 1)
Quarter: 2023Q4

REPORT INFORMATION
  Report Type: Report from Study
  Country: JP (occurrence: JP)
  Receive Date: 20231027
  Receipt Date: 20231027
  Transmission Date: 20240110
  Serious: Yes (Hospitalization)
  Sender: FDA-Public Use
  Company Number: JP-GUERBETG_JAPAN-JP-20230141

PATIENT
  Age: 8 Decade
  Sex: Male

DRUGS (2)
  1. LIPIODOL [Suspect]
     Active Substance: ETHIODIZED OIL
     Indication: Therapeutic embolisation
     Dosage: 0.4 ML OF A MIXTURE OF NBCA:LIPIODOL=1:2
     Route: 013
  2. ENBUCRILATE [Suspect]
     Active Substance: ENBUCRILATE
     Indication: Therapeutic embolisation
     Dosage: 0.4 ML OF A MIXTURE OF NBCA:LIPIODOL=1:2
     Route: 013

REACTIONS (2)
  - Duodenal stenosis [Recovered/Resolved]
  - Intestinal obstruction [Recovered/Resolved]
